FAERS Safety Report 5355729-8 (Version None)
Quarter: 2007Q2

REPORT INFORMATION
  Report Type: 
  Country: None (occurrence: None)
  Receive Date: 20070613
  Receipt Date: 20070606
  Transmission Date: 20071010
  Serious: Yes (Hospitalization)
  Sender: FDA-Public Use
  Company Number: JP-ASTRAZENECA-2007AP01959

PATIENT
  Age: 21820 Day
  Sex: Female
  Weight: 57 kg

DRUGS (9)
  1. CRESTOR [Suspect]
     Indication: HYPERCHOLESTEROLAEMIA
     Route: 048
     Dates: start: 20070307, end: 20070326
  2. SELBEX [Concomitant]
     Route: 048
  3. CONIEL [Concomitant]
     Indication: CEREBRAL INFARCTION
     Route: 048
  4. BLOPRESS [Concomitant]
     Indication: CEREBRAL INFARCTION
     Route: 048
  5. ASPIRIN [Concomitant]
     Indication: CEREBRAL INFARCTION
     Route: 048
  6. GLIMICRON [Concomitant]
     Indication: DIABETES MELLITUS
     Route: 048
  7. BASEN [Concomitant]
     Indication: DIABETES MELLITUS
     Route: 048
  8. MEVALOTIN [Concomitant]
     Indication: HYPERCHOLESTEROLAEMIA
     Dates: start: 20061201, end: 20070307
  9. MEDET [Concomitant]
     Indication: DIABETES MELLITUS
     Route: 048

REACTIONS (2)
  - NEPHROTIC SYNDROME [None]
  - RENAL IMPAIRMENT [None]
